FAERS Safety Report 25323400 (Version 1)
Quarter: 2025Q2

REPORT INFORMATION
  Report Type: Spontaneous
  Country: US (occurrence: None)
  Receive Date: 20250516
  Receipt Date: 20250516
  Transmission Date: 20250717
  Serious: Yes (Hospitalization)
  Sender: FDA-CTU
  Company Number: None

PATIENT
  Age: 73 Year
  Sex: Female
  Weight: 58 kg

DRUGS (2)
  1. ERBITUX [Suspect]
     Active Substance: CETUXIMAB
     Dates: end: 20250429
  2. TAXOTERE [Suspect]
     Active Substance: DOCETAXEL
     Dates: end: 20250429

REACTIONS (5)
  - Dehydration [None]
  - Dysphagia [None]
  - Odynophagia [None]
  - Hypophagia [None]
  - Oral candidiasis [None]

NARRATIVE: CASE EVENT DATE: 20250502
